FAERS Safety Report 13935962 (Version 2)
Quarter: 2017Q3

REPORT INFORMATION
  Report Type: Spontaneous
  Country: FR (occurrence: FR)
  Receive Date: 20170905
  Receipt Date: 20170906
  Transmission Date: 20171127
  Serious: Yes (Other)
  Sender: FDA-Public Use
  Company Number: FR-009507513-1709FRA000448

PATIENT
  Age: 71 Year
  Sex: Female

DRUGS (1)
  1. TEMODAL [Suspect]
     Active Substance: TEMOZOLOMIDE
     Indication: GLIOBLASTOMA
     Dosage: 160 MG, QD
     Route: 048
     Dates: start: 201604

REACTIONS (5)
  - Abdominal pain [Not Recovered/Not Resolved]
  - Dysgeusia [Not Recovered/Not Resolved]
  - Decreased appetite [Not Recovered/Not Resolved]
  - Constipation [Not Recovered/Not Resolved]
  - Weight decreased [Not Recovered/Not Resolved]

NARRATIVE: CASE EVENT DATE: 201604
